FAERS Safety Report 5708362-X (Version None)
Quarter: 2008Q2

REPORT INFORMATION
  Report Type: 
  Country: None (occurrence: None)
  Receive Date: 20080417
  Receipt Date: 20080408
  Transmission Date: 20081010
  Serious: Yes (Disabling, Other)
  Sender: FDA-Public Use
  Company Number: US-ALLERGAN-0804322US

PATIENT
  Sex: Male

DRUGS (3)
  1. ZYMAR [Suspect]
     Indication: PROPHYLAXIS
     Dosage: 1 GTT, QID
     Route: 047
  2. BEVACIZUMAB [Suspect]
     Indication: CHOROIDAL NEOVASCULARISATION
     Dosage: 1.25 MG, SINGLE
     Route: 050
  3. BEVACIZUMAB [Suspect]
     Indication: MACULAR DEGENERATION

REACTIONS (2)
  - DRUG INEFFECTIVE [None]
  - ENDOPHTHALMITIS [None]
